FAERS Safety Report 14877036 (Version 2)
Quarter: 2018Q3

REPORT INFORMATION
  Report Type: Spontaneous
  Country: US (occurrence: US)
  Receive Date: 20180510
  Receipt Date: 20180801
  Transmission Date: 20181010
  Serious: Yes (Hospitalization)
  Sender: FDA-Public Use
  Company Number: US-BAYER-2018-088487

PATIENT

DRUGS (3)
  1. FINACEA [Suspect]
     Active Substance: AZELAIC ACID
     Dosage: ONCE; 1ST USE
     Route: 061
     Dates: start: 201802, end: 201802
  2. METROGEL [Concomitant]
     Active Substance: METRONIDAZOLE
     Dosage: UNK
     Dates: end: 201802
  3. FINACEA [Suspect]
     Active Substance: AZELAIC ACID
     Dosage: ONCE; 2ND USE
     Route: 061
     Dates: start: 2018, end: 2018

REACTIONS (9)
  - Palpitations [Recovered/Resolved]
  - Cardiac flutter [Recovered/Resolved]
  - Ventricular extrasystoles [Recovered/Resolved]
  - Fatigue [Recovered/Resolved]
  - Malaise [Recovered/Resolved]
  - Tachycardia [Recovered/Resolved]
  - Discomfort [Recovered/Resolved]
  - Arrhythmia [Recovered/Resolved]
  - Dyspnoea [Recovered/Resolved]

NARRATIVE: CASE EVENT DATE: 201802
